FAERS Safety Report 9181485 (Version 1)
Quarter: 2013Q1

REPORT INFORMATION
  Report Type: Spontaneous
  Country: US (occurrence: None)
  Receive Date: 20130321
  Receipt Date: 20130321
  Transmission Date: 20140127
  Serious: No
  Sender: FDA-Public Use
  Company Number: None

PATIENT
  Sex: Male

DRUGS (1)
  1. SUTENT [Suspect]
     Dosage: 50 MG  DAILY BY MOUTH
     Route: 048
     Dates: start: 2009

REACTIONS (4)
  - Pain in extremity [None]
  - Diarrhoea [None]
  - Plantar erythema [None]
  - Dry skin [None]
